FAERS Safety Report 4874927-0 (Version None)
Quarter: 2006Q1

REPORT INFORMATION
  Report Type: 
  Country: None (occurrence: None)
  Receive Date: 20060105
  Receipt Date: 20051228
  Transmission Date: 20060701
  Serious: Yes (Hospitalization)
  Sender: FDA-Public Use
  Company Number: 2005-04791

PATIENT
  Age: 58 Year
  Sex: Female
  Weight: 72.6 kg

DRUGS (13)
  1. PREDNISONE [Suspect]
     Indication: AMAUROSIS FUGAX
     Dosage: 60MG, TID, ORAL
     Route: 048
     Dates: start: 20050801, end: 20051001
  2. UNSP NERVE MEDICATION [Concomitant]
  3. UNSP PAIN MEDICATION [Concomitant]
  4. ZOCOR [Concomitant]
  5. TRAZODONE (TRAZODONE) [Concomitant]
  6. DILTIAZEM HCL [Concomitant]
  7. LEVOTHYROXINE (LEVOTHRYROXINE) [Concomitant]
  8. FUROSEMIDE [Concomitant]
  9. PRAVACHOL [Concomitant]
  10. MAXAIR [Concomitant]
  11. NTG (GLYCERYL TRINITRATE) [Concomitant]
  12. BIAXIN [Concomitant]
  13. PHENERGAN WITH CODEINE (CHLOROFORM, SODIUM CITRATEM CITRIC ACID, SULFO [Concomitant]

REACTIONS (18)
  - AMAUROSIS FUGAX [None]
  - COUGH [None]
  - CUSHING'S SYNDROME [None]
  - DIABETES MELLITUS NON-INSULIN-DEPENDENT [None]
  - DIVERTICULUM [None]
  - GASTROOESOPHAGEAL REFLUX DISEASE [None]
  - HERPES ZOSTER [None]
  - INSOMNIA [None]
  - LOCAL SWELLING [None]
  - MUSCLE SPASMS [None]
  - OEDEMA PERIPHERAL [None]
  - PERITONEAL ADHESIONS [None]
  - SPUTUM DISCOLOURED [None]
  - SPUTUM PURULENT [None]
  - STOMACH DISCOMFORT [None]
  - SWELLING FACE [None]
  - TEMPORAL ARTERITIS [None]
  - WHEEZING [None]
